FAERS Safety Report 22278542 (Version 1)
Quarter: 2023Q2

REPORT INFORMATION
  Report Type: Report from Study
  Country: CO (occurrence: CO)
  Receive Date: 20230503
  Receipt Date: 20230503
  Transmission Date: 20230721
  Serious: Yes (Hospitalization, Other)
  Sender: FDA-Public Use
  Company Number: CO-ABBVIE-4748674

PATIENT
  Sex: Female
  Weight: 59 kg

DRUGS (1)
  1. ZEMPLAR [Suspect]
     Active Substance: PARICALCITOL
     Indication: Hyperparathyroidism
     Dosage: 1 MICROGRAM
     Route: 048
     Dates: start: 20170310

REACTIONS (8)
  - Blood pressure abnormal [Recovering/Resolving]
  - Diarrhoea [Recovering/Resolving]
  - Gastritis viral [Recovering/Resolving]
  - Frequent bowel movements [Recovering/Resolving]
  - Gastrointestinal disorder [Recovering/Resolving]
  - Renal failure [Recovering/Resolving]
  - Osteoporosis [Recovering/Resolving]
  - Decreased appetite [Recovering/Resolving]

NARRATIVE: CASE EVENT DATE: 20210101
